FAERS Safety Report 12296990 (Version 1)
Quarter: 2016Q2

REPORT INFORMATION
  Report Type: Spontaneous
  Country: US (occurrence: US)
  Receive Date: 20160422
  Receipt Date: 20160422
  Transmission Date: 20160815
  Serious: No
  Sender: FDA-Public Use
  Company Number: US-SA-2016SA008956

PATIENT
  Sex: Male

DRUGS (1)
  1. AFREZZA [Suspect]
     Active Substance: INSULIN HUMAN
     Indication: DIABETES MELLITUS
     Dosage: ROUTE: ORAL INHALATIONAL ?FREQUENCY: BEFORE FOOD DOSE:4 UNIT(S)
     Dates: start: 20151210, end: 20160113

REACTIONS (1)
  - Drug ineffective [Unknown]
